FAERS Safety Report 16750242 (Version 1)
Quarter: 2019Q3

REPORT INFORMATION
  Report Type: Spontaneous
  Country: CN (occurrence: CN)
  Receive Date: 20190828
  Receipt Date: 20190828
  Transmission Date: 20191005
  Serious: Yes (Hospitalization, Other)
  Sender: FDA-Public Use
  Company Number: CN-PFIZER INC-2019365919

PATIENT
  Age: 69 Year
  Sex: Male
  Weight: 66 kg

DRUGS (1)
  1. LIPITOR [Suspect]
     Active Substance: ATORVASTATIN CALCIUM
     Indication: ARTERIOSCLEROSIS
     Dosage: 20 MG, 1X/DAY
     Route: 048
     Dates: start: 20160801, end: 20190807

REACTIONS (5)
  - Blood creatine phosphokinase increased [Unknown]
  - Rhabdomyolysis [Unknown]
  - Myalgia [Recovering/Resolving]
  - Muscular weakness [Unknown]
  - C-reactive protein increased [Unknown]

NARRATIVE: CASE EVENT DATE: 20190807
